FAERS Safety Report 9515653 (Version 1)
Quarter: 2013Q3

REPORT INFORMATION
  Report Type: Spontaneous
  Country: US (occurrence: US)
  Receive Date: 20130911
  Receipt Date: 20130911
  Transmission Date: 20140515
  Serious: Yes (Life-Threatening, Hospitalization)
  Sender: FDA-Public Use
  Company Number: US-BAYER-2013-108871

PATIENT
  Age: 24 Year
  Sex: Female
  Weight: 86.17 kg

DRUGS (2)
  1. YASMIN [Suspect]
  2. ADENOSINE [Concomitant]
     Route: 042

REACTIONS (1)
  - Myocardial infarction [None]
